FAERS Safety Report 5348519-3 (Version None)
Quarter: 2007Q2

REPORT INFORMATION
  Report Type: 
  Country: None (occurrence: None)
  Receive Date: 20070605
  Receipt Date: 20070521
  Transmission Date: 20071010
  Serious: Yes (Hospitalization, Other)
  Sender: FDA-Public Use
  Company Number: 100#08#2007-01767

PATIENT
  Age: 18 Year
  Sex: Female

DRUGS (6)
  1. CARBOPLATIN [Suspect]
     Indication: PRIMITIVE NEUROECTODERMAL TUMOUR
     Dosage: SEE IMAGE
     Route: 042
  2. VINCRISTINE [Suspect]
     Indication: PRIMITIVE NEUROECTODERMAL TUMOUR
     Dosage: 1.5 MG/M2 (MAXIMUM 2 MG) --
  3. CYCLOPHOSPHAMIDE [Suspect]
     Indication: PRIMITIVE NEUROECTODERMAL TUMOUR
     Dosage: 2.1 G/M2, TOTAL DOSE PER CYCLE 4.2 G/M2 (INTRAVENOUS (NOT OTHERWISE SPECIFIED)
     Route: 042
  4. THIOTEPA [Suspect]
     Indication: PRIMITIVE NEUROECTODERMAL TUMOUR
     Dosage: 300 MG/M2
  5. ETOPOSIDE [Suspect]
     Indication: PRIMITIVE NEUROECTODERMAL TUMOUR
     Dosage: 250 MG/M2
  6. NEUPOGEN [Suspect]
     Indication: PRIMITIVE NEUROECTODERMAL TUMOUR
     Dosage: 5 UG/KG

REACTIONS (4)
  - DRUG INEFFECTIVE [None]
  - HERPES ZOSTER [None]
  - MIXED INCONTINENCE [None]
  - MYELITIS TRANSVERSE [None]
